FAERS Safety Report 5037823-4 (Version None)
Quarter: 2006Q2

REPORT INFORMATION
  Report Type: 
  Country: None (occurrence: None)
  Receive Date: 20060601
  Receipt Date: 20060209
  Transmission Date: 20061013
  Serious: No
  Sender: FDA-Public Use
  Company Number: 2006PV008461

PATIENT
  Age: 54 Year
  Sex: Male
  Weight: 140.6151 kg

DRUGS (5)
  1. BYETTA [Suspect]
     Indication: DIABETES MELLITUS NON-INSULIN-DEPENDENT
     Dosage: SEE IMAGE
     Route: 058
     Dates: start: 20051201, end: 20051228
  2. BYETTA [Suspect]
     Indication: DIABETES MELLITUS NON-INSULIN-DEPENDENT
     Dosage: SEE IMAGE
     Route: 058
     Dates: start: 20051229
  3. ACTOS /USA/ [Concomitant]
  4. ASPIRIN [Concomitant]
  5. PRILOSEC [Concomitant]

REACTIONS (9)
  - ARTHRALGIA [None]
  - BACK PAIN [None]
  - DEPRESSION [None]
  - DYSPEPSIA [None]
  - GASTROOESOPHAGEAL REFLUX DISEASE [None]
  - INJECTION SITE BRUISING [None]
  - NAUSEA [None]
  - NECK PAIN [None]
  - SHOULDER PAIN [None]
